FAERS Safety Report 8139623-5 (Version None)
Quarter: 2012Q1

REPORT INFORMATION
  Report Type: 
  Country: None (occurrence: None)
  Receive Date: 20120215
  Receipt Date: 20120208
  Transmission Date: 20120608
  Serious: Yes (Other)
  Sender: FDA-Public Use
  Company Number: PHHY2012CA011408

PATIENT
  Sex: Male

DRUGS (14)
  1. LIPITOR [Concomitant]
     Dosage: 20 MG, UNK
  2. FERROUS GLUCONATE [Concomitant]
     Dosage: 300 MG, TID
  3. RAMIPRIL [Concomitant]
     Dosage: 10 MG, UNK
  4. ZOLADEX [Concomitant]
     Dosage: 10.8 MG, UNK
  5. HYDROCHLOROTHIAZIDE [Concomitant]
     Dosage: 25 MG, UNK
  6. NIFEDIPINE [Concomitant]
     Dosage: 20 MG, UNK
  7. EZETIMIBE [Concomitant]
     Dosage: 10 MG, UNK
  8. PRANDASE [Concomitant]
     Dosage: 50 MG, BID
  9. METFORMIN HCL [Concomitant]
     Dosage: 500 MG, BID
  10. CALCIUM WITH VITAMIN D [Concomitant]
  11. ZOMETA [Suspect]
     Indication: PROSTATE CANCER METASTATIC
     Dosage: 04 MG, UNK
     Route: 042
     Dates: start: 20111021, end: 20111021
  12. ASPIRIN [Concomitant]
  13. GLICLAZIDE [Concomitant]
     Dosage: 30 MG, QID
  14. METOCLOPRAMIDE [Concomitant]
     Dosage: 50 MG, UNK

REACTIONS (9)
  - PYREXIA [None]
  - LETHARGY [None]
  - VOMITING [None]
  - HEADACHE [None]
  - ASTHENIA [None]
  - DYSSTASIA [None]
  - INFLUENZA LIKE ILLNESS [None]
  - NAUSEA [None]
  - FALL [None]
